FAERS Safety Report 6531431-1 (Version None)
Quarter: 2010Q1

REPORT INFORMATION
  Report Type: 
  Country: None (occurrence: None)
  Receive Date: 20100108
  Receipt Date: 20091124
  Transmission Date: 20100710
  Serious: No
  Sender: FDA-Public Use
  Company Number: A0832116A

PATIENT
  Sex: Female

DRUGS (2)
  1. TYKERB [Suspect]
     Indication: DRUG USE FOR UNKNOWN INDICATION
     Dosage: 250MG FIVE TIMES PER DAY
     Route: 048
     Dates: start: 20091001
  2. XELODA [Concomitant]
     Route: 065

REACTIONS (7)
  - ARTHRALGIA [None]
  - DECREASED APPETITE [None]
  - DIARRHOEA [None]
  - DRY SKIN [None]
  - DYSGEUSIA [None]
  - FATIGUE [None]
  - NAUSEA [None]
